FAERS Safety Report 12970158 (Version 2)
Quarter: 2016Q4

REPORT INFORMATION
  Report Type: Spontaneous
  Country: DE (occurrence: DE)
  Receive Date: 20161123
  Receipt Date: 20161221
  Transmission Date: 20170207
  Serious: Yes (Other)
  Sender: FDA-Public Use
  Company Number: DE-TEVA-706054GER

PATIENT
  Sex: Male
  Weight: 62 kg

DRUGS (1)
  1. PRAVASTATIN-RATIOPHARM 20 MG TABLETTEN [Suspect]
     Active Substance: PRAVASTATIN
     Indication: BLOOD CHOLESTEROL INCREASED
     Dosage: 20 MILLIGRAM DAILY;
     Route: 048
     Dates: end: 20161030

REACTIONS (10)
  - Pain in extremity [Recovered/Resolved]
  - Back pain [Recovered/Resolved]
  - Diabetes mellitus [Recovered/Resolved]
  - Asthenia [Unknown]
  - Cystitis noninfective [Unknown]
  - Fall [Unknown]
  - Muscle spasms [Unknown]
  - Weight decreased [Recovered/Resolved]
  - Pain [Unknown]
  - Osteoarthritis [Unknown]

NARRATIVE: CASE EVENT DATE: 2016
